FAERS Safety Report 11366139 (Version 1)
Quarter: 2015Q3

REPORT INFORMATION
  Report Type: Spontaneous
  Country: DE (occurrence: FR)
  Receive Date: 20150811
  Receipt Date: 20150811
  Transmission Date: 20151125
  Serious: Yes (Hospitalization)
  Sender: FDA-Public Use
  Company Number: FR-FRI-1000078813

PATIENT
  Age: 69 Year
  Sex: Male

DRUGS (8)
  1. IMOVANE [Suspect]
     Active Substance: ZOPICLONE
     Indication: INSOMNIA
     Dosage: 7.5 MG
     Route: 048
     Dates: start: 20150119, end: 20150122
  2. LANSOYL [Suspect]
     Active Substance: MINERAL OIL
     Indication: CONSTIPATION
     Route: 048
     Dates: start: 20150119, end: 20150122
  3. SERESTA [Suspect]
     Active Substance: OXAZEPAM
     Indication: ANXIETY
     Dosage: 10 MG
     Route: 048
     Dates: end: 20150122
  4. MEMANTINE. [Suspect]
     Active Substance: MEMANTINE
     Indication: DEMENTIA ALZHEIMER^S TYPE
     Dosage: 10 MG
     Route: 048
     Dates: end: 20150122
  5. LAROXYL [Suspect]
     Active Substance: AMITRIPTYLINE
     Indication: DEPRESSION
     Dosage: 50 MG
     Route: 048
     Dates: end: 20150122
  6. TERALITHE [Suspect]
     Active Substance: LITHIUM CARBONATE
     Indication: PSYCHOTIC DISORDER
     Dosage: 250 MG
     Route: 048
     Dates: end: 20150122
  7. LOXAPAC [Suspect]
     Active Substance: LOXAPINE SUCCINATE
     Indication: PSYCHOTIC DISORDER
     Route: 048
     Dates: start: 20141201, end: 20150122
  8. TERALITHE [Suspect]
     Active Substance: LITHIUM CARBONATE
     Dosage: 250 MG
     Route: 048
     Dates: start: 20150206

REACTIONS (2)
  - Disorientation [Recovered/Resolved]
  - Pneumonia aspiration [Recovered/Resolved]

NARRATIVE: CASE EVENT DATE: 20150121
